FAERS Safety Report 26063832 (Version 1)
Quarter: 2025Q4

REPORT INFORMATION
  Report Type: Spontaneous
  Country: EU (occurrence: EU)
  Receive Date: 20251119
  Receipt Date: 20251119
  Transmission Date: 20260118
  Serious: Yes (Other)
  Sender: GLAXOSMITHKLINE
  Company Number: EU-GSKCCFEMEA-Case-02717229_AE-104996

PATIENT

DRUGS (5)
  1. BLENREP [Suspect]
     Active Substance: BELANTAMAB MAFODOTIN-BLMF
     Indication: Product used for unknown indication
     Dosage: UNK, Q4W
  2. BLENREP [Suspect]
     Active Substance: BELANTAMAB MAFODOTIN-BLMF
     Dosage: 1.9 MG/KG, Q4W
  3. BORTEZOMIB [Suspect]
     Active Substance: BORTEZOMIB
     Indication: Product used for unknown indication
     Dosage: UNK UNK, Q4W
  4. BORTEZOMIB [Suspect]
     Active Substance: BORTEZOMIB
     Dosage: 1 MG/M?, Q4W
  5. ZOLEDRONIC ACID [Concomitant]
     Active Substance: ZOLEDRONIC ACID
     Indication: Product used for unknown indication
     Dosage: UNK

REACTIONS (5)
  - Thrombocytopenia [Unknown]
  - Diabetes mellitus [Unknown]
  - Disease recurrence [Unknown]
  - Keratopathy [Unknown]
  - Visual acuity reduced [Unknown]
